FAERS Safety Report 23288278 (Version 1)
Quarter: 2023Q4

REPORT INFORMATION
  Report Type: Spontaneous
  Country: CN (occurrence: CN)
  Receive Date: 20231212
  Receipt Date: 20231212
  Transmission Date: 20240109
  Serious: Yes (Hospitalization, Other)
  Sender: FDA-Public Use
  Company Number: CN-SANDOZ-SDZ2023CN061897

PATIENT
  Age: 18 Year
  Sex: Female

DRUGS (2)
  1. LIDOCAINE [Suspect]
     Active Substance: LIDOCAINE
     Indication: Keloid scar
     Dosage: 0.2 ML
     Route: 065
  2. TRIAMCINOLONE [Suspect]
     Active Substance: TRIAMCINOLONE
     Indication: Keloid scar
     Dosage: 1 ML:40 MG
     Route: 065
     Dates: start: 20220614

REACTIONS (4)
  - Deafness neurosensory [Not Recovered/Not Resolved]
  - Ear pain [Unknown]
  - Tinnitus [Unknown]
  - Dizziness [Unknown]
